FAERS Safety Report 22198429 (Version 1)
Quarter: 2023Q2

REPORT INFORMATION
  Report Type: Spontaneous
  Country: US (occurrence: None)
  Receive Date: 20230411
  Receipt Date: 20230411
  Transmission Date: 20230722
  Serious: No
  Sender: FDA-Public Use
  Company Number: None

PATIENT
  Age: 52 Year
  Sex: Female
  Weight: 103.87 kg

DRUGS (17)
  1. WELIREG [Suspect]
     Active Substance: BELZUTIFAN
     Indication: Renal cancer
     Dosage: FREQUENCY : DAILY;?
     Route: 048
  2. ALLOPURINOL [Concomitant]
  3. ASPIRIN [Concomitant]
     Active Substance: ASPIRIN
  4. BUPROPION [Concomitant]
  5. DULLERA [Concomitant]
  6. FOLIC ACID [Concomitant]
  7. FUROSEMIDE [Concomitant]
  8. GABAPENTIN [Concomitant]
  9. LORATADINE [Concomitant]
  10. LAMOTRIGINE [Concomitant]
  11. METFORMIN [Concomitant]
  12. METOPROLOL [Concomitant]
  13. PANTOPRAZOLE [Concomitant]
  14. POTASSIUM [Concomitant]
  15. SEROQUEL [Concomitant]
  16. SPIRIVA [Concomitant]
  17. WELIFREG [Concomitant]

REACTIONS (1)
  - Arthralgia [None]
